FAERS Safety Report 5507695-X (Version None)
Quarter: 2007Q4

REPORT INFORMATION
  Report Type: 
  Country: None (occurrence: None)
  Receive Date: 20071106
  Receipt Date: 20071031
  Transmission Date: 20080405
  Serious: Yes (Hospitalization)
  Sender: FDA-Public Use
  Company Number: B0493389A

PATIENT
  Sex: Male

DRUGS (4)
  1. ARIXTRA [Suspect]
     Indication: THROMBOSIS PROPHYLAXIS
     Dosage: 2.5MG PER DAY
     Route: 058
     Dates: start: 20071020, end: 20071020
  2. CEFAMEZIN [Concomitant]
     Route: 065
  3. UNKNOWN [Concomitant]
     Route: 042
  4. DEXTRAN(MOL.WT.UNSPECIFIED) [Concomitant]
     Route: 042

REACTIONS (1)
  - LOCAL SWELLING [None]
